FAERS Safety Report 20740960 (Version 1)
Quarter: 2022Q2

REPORT INFORMATION
  Report Type: Spontaneous
  Country: US (occurrence: US)
  Receive Date: 20220422
  Receipt Date: 20220422
  Transmission Date: 20220721
  Serious: No
  Sender: FDA-Public Use
  Company Number: MIQ-06152021-1439(V1)

PATIENT
  Sex: Female

DRUGS (1)
  1. LEVOTHYROXINE SODIUM [Suspect]
     Active Substance: LEVOTHYROXINE SODIUM
     Indication: Product used for unknown indication
     Dosage: INITIAL DOSE: 112MG DAILY; LOWERED TO 112MCG 5 DAYS A WEEK + HALF OF A 112MCG TABLET 2 DAYS A WEEK
     Route: 065

REACTIONS (2)
  - Breast pain [Unknown]
  - Pain [Unknown]
